FAERS Safety Report 7213459-1 (Version None)
Quarter: 2011Q1

REPORT INFORMATION
  Report Type: 
  Country: None (occurrence: None)
  Receive Date: 20110106
  Receipt Date: 20101230
  Transmission Date: 20110831
  Serious: Yes (Other)
  Sender: FDA-Public Use
  Company Number: US-JNJFOC-20101107924

PATIENT
  Sex: Female
  Weight: 61.24 kg

DRUGS (1)
  1. LEVAQUIN [Suspect]
     Indication: PNEUMONIA
     Route: 048

REACTIONS (7)
  - OEDEMA PERIPHERAL [None]
  - ERYTHEMA NODOSUM [None]
  - JOINT SWELLING [None]
  - SEPSIS [None]
  - TENDON RUPTURE [None]
  - LIGAMENT RUPTURE [None]
  - ARTHRALGIA [None]
